FAERS Safety Report 13105632 (Version 1)
Quarter: 2017Q1

REPORT INFORMATION
  Report Type: Spontaneous
  Country: US (occurrence: US)
  Receive Date: 20170111
  Receipt Date: 20170111
  Transmission Date: 20170428
  Serious: Yes (Hospitalization, Disabling, Other)
  Sender: FDA-Public Use
  Company Number: None

PATIENT
  Age: 33 Year
  Sex: Female
  Weight: 94.43 kg

DRUGS (12)
  1. HYDROCHLOROTHIAZIDE. [Concomitant]
     Active Substance: HYDROCHLOROTHIAZIDE
  2. NAPROXEN. [Concomitant]
     Active Substance: NAPROXEN
  3. CYCLOBENZAPRINE [Concomitant]
     Active Substance: CYCLOBENZAPRINE
  4. IBUPROFEN. [Concomitant]
     Active Substance: IBUPROFEN
  5. BENARL [Concomitant]
  6. VIVITROL [Suspect]
     Active Substance: NALTREXONE
     Indication: DRUG DEPENDENCE
     Dates: start: 20140913, end: 20161121
  7. NEURONTIN [Concomitant]
     Active Substance: GABAPENTIN
  8. FLUTICASONE PROPIONATE. [Concomitant]
     Active Substance: FLUTICASONE PROPIONATE
  9. PREDINISONE [Concomitant]
  10. TORADOL [Concomitant]
     Active Substance: KETOROLAC TROMETHAMINE
  11. ZESTORETIC [Suspect]
     Active Substance: HYDROCHLOROTHIAZIDE\LISINOPRIL
  12. ICY HOT [Concomitant]
     Active Substance: MENTHOL\METHYL SALICYLATE

REACTIONS (17)
  - Wound [None]
  - Blister [None]
  - Arthralgia [None]
  - Nausea [None]
  - Depression [None]
  - Pain [None]
  - Vomiting [None]
  - Muscle spasms [None]
  - Toothache [None]
  - Mass [None]
  - Insomnia [None]
  - Swelling [None]
  - Scab [None]
  - Fatigue [None]
  - Headache [None]
  - Dizziness [None]
  - Nasopharyngitis [None]

NARRATIVE: CASE EVENT DATE: 20150708
